FAERS Safety Report 21054778 (Version 2)
Quarter: 2022Q3

REPORT INFORMATION
  Report Type: Spontaneous
  Country: JP (occurrence: JP)
  Receive Date: 20220707
  Receipt Date: 20220822
  Transmission Date: 20221027
  Serious: Yes (Other)
  Sender: FDA-Public Use
  Company Number: JP-BAYER-2022A090873

PATIENT
  Age: 65 Year
  Sex: Female
  Weight: 46 kg

DRUGS (8)
  1. VERICIGUAT HYDROCHLORIDE [Suspect]
     Active Substance: VERICIGUAT HYDROCHLORIDE
     Indication: Congestive cardiomyopathy
     Dosage: DAILY DOSE 2.5MG
     Route: 048
     Dates: start: 20220303, end: 20220317
  2. VERICIGUAT HYDROCHLORIDE [Suspect]
     Active Substance: VERICIGUAT HYDROCHLORIDE
     Indication: Cardiac failure
     Dosage: DAILY DOSE 5MG
     Route: 048
     Dates: start: 20220418
  3. VERICIGUAT HYDROCHLORIDE [Suspect]
     Active Substance: VERICIGUAT HYDROCHLORIDE
     Indication: Cardiac failure chronic
  4. PERINDOPRIL [Concomitant]
     Active Substance: PERINDOPRIL
     Indication: Cardiac failure chronic
     Dosage: DAILY DOSE 4MG
     Route: 048
  5. LASIX [Concomitant]
     Active Substance: FUROSEMIDE
     Indication: Cardiac failure chronic
     Dosage: DAILY DOSE 10MG
     Route: 048
  6. FEBUXOSTAT [Concomitant]
     Active Substance: FEBUXOSTAT
     Indication: Hyperuricaemia
     Dosage: DAILY DOSE 20MG
     Route: 048
  7. EDOXABAN TOSYLATE [Concomitant]
     Active Substance: EDOXABAN TOSYLATE
     Indication: Atrial fibrillation
     Dosage: DAILY DOSE 30MG
     Route: 048
  8. CARVEDILOL [Concomitant]
     Active Substance: CARVEDILOL
     Indication: Cardiac failure chronic
     Dosage: DAILY DOSE 2.5MG
     Route: 048

REACTIONS (7)
  - Pericardial effusion [Not Recovered/Not Resolved]
  - Cardiac failure [Unknown]
  - Pericarditis [Not Recovered/Not Resolved]
  - Cardiothoracic ratio increased [Unknown]
  - Cardiomegaly [Unknown]
  - Pleural effusion [Unknown]
  - Left atrial enlargement [Unknown]
